FAERS Safety Report 12900597 (Version 3)
Quarter: 2017Q1

REPORT INFORMATION
  Report Type: Spontaneous
  Country: US (occurrence: US)
  Receive Date: 20161101
  Receipt Date: 20170331
  Transmission Date: 20170428
  Serious: Yes (Hospitalization)
  Sender: FDA-Public Use
  Company Number: US-ACTELION-A-US2016-144592

PATIENT
  Age: 74 Year
  Sex: Female

DRUGS (4)
  1. BUMEX [Concomitant]
     Active Substance: BUMETANIDE
  2. VENTAVIS [Suspect]
     Active Substance: ILOPROST
     Dosage: 2.6 MCG, UNK
     Route: 055
  3. VENTAVIS [Suspect]
     Active Substance: ILOPROST
     Indication: PULMONARY ARTERIAL HYPERTENSION
     Dosage: UNK, QID
     Route: 055
  4. VENTAVIS [Suspect]
     Active Substance: ILOPROST
     Dosage: 5 MCG, Q4HRS
     Route: 055
     Dates: start: 20151229

REACTIONS (8)
  - Oedema [Not Recovered/Not Resolved]
  - Cardiac failure acute [Recovering/Resolving]
  - Dyspnoea [Recovered/Resolved]
  - Abdominal distension [Recovering/Resolving]
  - Anaemia [Recovering/Resolving]
  - Right ventricular failure [Recovering/Resolving]
  - Gout [Not Recovered/Not Resolved]
  - Musculoskeletal pain [Not Recovered/Not Resolved]

NARRATIVE: CASE EVENT DATE: 20170304
